FAERS Safety Report 5102826-8 (Version None)
Quarter: 2006Q3

REPORT INFORMATION
  Report Type: 
  Country: None (occurrence: None)
  Receive Date: 20060907
  Receipt Date: 20060830
  Transmission Date: 20061208
  Serious: Yes (Other)
  Sender: FDA-Public Use
  Company Number: 2006-04753

PATIENT
  Age: 5 Year
  Sex: Female

DRUGS (3)
  1. PREDNISONE TAB [Suspect]
     Indication: NEPHROTIC SYNDROME
     Dosage: 4730 MG, TOTAL CUMULATIVE DOSE;
     Dates: start: 20000101, end: 20000101
  2. METHYLPREDNISOLONE 4MG TAB [Suspect]
     Indication: NEPHROTIC SYNDROME
     Dosage: 1500 MG, TOTAL CUMMULATIVE DOSE; INTRAVENOUS
     Route: 042
     Dates: start: 20000101, end: 20000101
  3. CYCLOPHOSPHAMIDE [Concomitant]

REACTIONS (1)
  - OSTEONECROSIS [None]
